FAERS Safety Report 8190347-8 (Version None)
Quarter: 2012Q1

REPORT INFORMATION
  Report Type: 
  Country: None (occurrence: None)
  Receive Date: 20120307
  Receipt Date: 20120229
  Transmission Date: 20120608
  Serious: Yes (Other)
  Sender: FDA-Public Use
  Company Number: US-PFIZER INC-2012054642

PATIENT
  Sex: Female
  Weight: 79.365 kg

DRUGS (3)
  1. COZAAR [Concomitant]
     Dosage: UNK
  2. XALATAN [Suspect]
     Indication: GLAUCOMA
     Dosage: UNK
     Route: 047
  3. BRIMONIDINE [Concomitant]
     Dosage: UNK

REACTIONS (1)
  - EYE DISORDER [None]
